FAERS Safety Report 4910677-X (Version None)
Quarter: 2006Q1

REPORT INFORMATION
  Report Type: 
  Country: None (occurrence: None)
  Receive Date: 20060208
  Receipt Date: 20060208
  Transmission Date: 20060701
  Serious: Yes (Hospitalization)
  Sender: FDA-Public Use
  Company Number: None

PATIENT
  Sex: Male
  Weight: 65.318 kg

DRUGS (12)
  1. VALSARTAN [Suspect]
     Indication: HYPERTENSION
     Dosage: 40 MG DAILY
     Dates: start: 20050505, end: 20051012
  2. METOPROLOL [Suspect]
     Indication: CORONARY ARTERY DISEASE
     Dosage: 25 MG BID
     Dates: start: 20050505, end: 20051012
  3. FUROSEMIDE [Suspect]
     Dosage: 40 MG DAILY
     Dates: start: 20050505, end: 20051012
  4. FOLIC ACID [Concomitant]
  5. ISOSORBIDE MONONITRATE [Concomitant]
  6. TEMAZEPAM [Concomitant]
  7. ETODOLAC [Concomitant]
  8. POTASSIUM CHLORIDE [Concomitant]
  9. RANITIDINE HCL [Concomitant]
  10. SIMVASTATIN [Concomitant]
  11. ASPIRIN [Concomitant]
  12. NITROGLYCERIN [Concomitant]

REACTIONS (1)
  - DIZZINESS POSTURAL [None]
